FAERS Safety Report 8234368-5 (Version None)
Quarter: 2012Q1

REPORT INFORMATION
  Report Type: 
  Country: None (occurrence: None)
  Receive Date: 20120326
  Receipt Date: 20120322
  Transmission Date: 20120608
  Serious: Yes (Death)
  Sender: FDA-Public Use
  Company Number: AU-B.I. PHARMACEUTICALS,INC./RIDGEFIELD-2012-AU-00622AU

PATIENT
  Sex: Male

DRUGS (8)
  1. PRADAXA [Suspect]
     Indication: ATRIAL FIBRILLATION
  2. MAXOLON [Concomitant]
  3. NEXIUM [Concomitant]
  4. GOPTIN [Concomitant]
  5. INDAPAMIDE [Concomitant]
  6. LAMISIL [Concomitant]
  7. PRADAXA [Suspect]
     Indication: CEREBROVASCULAR ACCIDENT PROPHYLAXIS
     Dosage: 220 MG
     Dates: start: 20110915, end: 20120101
  8. ZYLOPRIM [Concomitant]

REACTIONS (1)
  - DEATH [None]
